FAERS Safety Report 14118016 (Version 2)
Quarter: 2018Q1

REPORT INFORMATION
  Report Type: Spontaneous
  Country: CO (occurrence: CO)
  Receive Date: 20171024
  Receipt Date: 20180208
  Transmission Date: 20180508
  Serious: Yes (Disabling, Other)
  Sender: FDA-Public Use
  Company Number: CO-AMGEN-COLSP2017082739

PATIENT
  Age: 69 Year
  Sex: Female
  Weight: 64 kg

DRUGS (3)
  1. ENBREL [Suspect]
     Active Substance: ETANERCEPT
     Dosage: 50 MG, UNK
     Route: 058
     Dates: start: 20170828
  2. ENBREL [Suspect]
     Active Substance: ETANERCEPT
     Indication: ARTHRITIS
     Dosage: 50 MG, WEEKLY
     Route: 058
     Dates: start: 20170424
  3. ENBREL [Suspect]
     Active Substance: ETANERCEPT
     Indication: NEOPLASM
     Dosage: 50 MG, WEEKLY
     Route: 058
     Dates: start: 2017, end: 201708

REACTIONS (9)
  - Drug dose omission [Unknown]
  - Drug effect incomplete [Unknown]
  - Pain in extremity [Not Recovered/Not Resolved]
  - Disease recurrence [Unknown]
  - Decreased immune responsiveness [Unknown]
  - Peripheral swelling [Not Recovered/Not Resolved]
  - Loss of personal independence in daily activities [Not Recovered/Not Resolved]
  - Intentional product misuse [Unknown]
  - Wrong technique in product usage process [Unknown]

NARRATIVE: CASE EVENT DATE: 2017
